FAERS Safety Report 7820369-5 (Version None)
Quarter: 2011Q4

REPORT INFORMATION
  Report Type: 
  Country: None (occurrence: None)
  Receive Date: 20111018
  Receipt Date: 20111003
  Transmission Date: 20120403
  Serious: Yes (Other)
  Sender: FDA-Public Use
  Company Number: US-ROCHE-1002928

PATIENT
  Sex: Male

DRUGS (2)
  1. ZELBORAF [Suspect]
     Indication: METASTATIC MALIGNANT MELANOMA
     Dosage: 8 PILLS
     Route: 065
  2. ZELBORAF [Suspect]
     Dosage: 6 OILLS
     Route: 065

REACTIONS (15)
  - VISION BLURRED [None]
  - ALOPECIA [None]
  - MALAISE [None]
  - HEADACHE [None]
  - PALPITATIONS [None]
  - NIGHTMARE [None]
  - BACK DISORDER [None]
  - ABNORMAL DREAMS [None]
  - MUSCLE SPASMS [None]
  - ARTHRALGIA [None]
  - CHEST PAIN [None]
  - HYPERTENSION [None]
  - CONSTIPATION [None]
  - RASH [None]
  - PYREXIA [None]
